FAERS Safety Report 9456162 (Version 1)
Quarter: 2013Q3

REPORT INFORMATION
  Report Type: Spontaneous
  Country: FR (occurrence: None)
  Receive Date: 20130808
  Receipt Date: 20130808
  Transmission Date: 20140515
  Serious: Yes (Hospitalization)
  Sender: FDA-Public Use
  Company Number: SYM-2013-07665

PATIENT
  Age: 1 Day
  Sex: Female

DRUGS (7)
  1. FLAGYL (METRONIDAZOLE) (500 MILLIGRAM) (METRONIDAZOLE) [Suspect]
     Route: 064
     Dates: start: 20130512
  2. NORVIR [Suspect]
     Indication: PRODUCT USED FOR UNKNOWN INDICATION
     Route: 064
     Dates: start: 2010, end: 20130708
  3. RETROVIR [Suspect]
     Route: 064
     Dates: start: 20130520
  4. MORPHINE HYDROCHLORIDE [Suspect]
     Route: 064
     Dates: start: 20130520
  5. SUFENTANIL [Suspect]
     Route: 064
     Dates: start: 20130520, end: 20130520
  6. DARUNAVIR [Suspect]
     Indication: PRODUCT USED FOR UNKNOWN INDICATION
     Route: 064
     Dates: start: 2010
  7. BUPIVACAINE [Suspect]
     Indication: PRODUCT USED FOR UNKNOWN INDICATION
     Route: 064
     Dates: start: 20130520

REACTIONS (4)
  - Caesarean section [None]
  - Premature baby [None]
  - Hypotension [None]
  - Maternal drugs affecting foetus [None]
